FAERS Safety Report 5010073-3 (Version None)
Quarter: 2006Q2

REPORT INFORMATION
  Report Type: 
  Country: None (occurrence: None)
  Receive Date: 20060524
  Receipt Date: 20060517
  Transmission Date: 20061013
  Serious: Yes (Other)
  Sender: FDA-Public Use
  Company Number: PHBS2006PT07381

PATIENT
  Age: 71 Year
  Sex: Male

DRUGS (1)
  1. ZOMETA [Suspect]

REACTIONS (3)
  - BONE DEBRIDEMENT [None]
  - OSTEOMYELITIS [None]
  - PYOGENIC GRANULOMA [None]
